FAERS Safety Report 17348340 (Version 3)
Quarter: 2020Q1

REPORT INFORMATION
  Report Type: Spontaneous
  Country: US (occurrence: US)
  Receive Date: 20200130
  Receipt Date: 20200218
  Transmission Date: 20200409
  Serious: No
  Sender: FDA-Public Use
  Company Number: US-PFIZER INC-2020039649

PATIENT
  Age: 66 Year
  Sex: Female
  Weight: 30.86 kg

DRUGS (4)
  1. ESTRING [Suspect]
     Active Substance: ESTRADIOL
     Indication: VULVOVAGINAL DRYNESS
     Dosage: 2 MG, (2MG, 1 UNIT INSERTED VAGINALLY ONCE)
     Route: 067
     Dates: start: 201709
  2. ESTRING [Suspect]
     Active Substance: ESTRADIOL
     Indication: SEXUAL DYSFUNCTION
  3. RESTASIS [Concomitant]
     Active Substance: CYCLOSPORINE
     Indication: DRY EYE
     Dosage: 1 GTT, 2X/DAY [1 DROP IN EACH EYE TWICE A DAY]
     Route: 047
     Dates: start: 201910
  4. ESTRING [Suspect]
     Active Substance: ESTRADIOL
     Indication: HYPERTONIC BLADDER

REACTIONS (5)
  - Dry skin [Recovered/Resolved]
  - Haemorrhoids [Recovered/Resolved]
  - Pruritus [Recovered/Resolved]
  - Rash [Recovered/Resolved]
  - Photosensitivity reaction [Recovered/Resolved]

NARRATIVE: CASE EVENT DATE: 20200116
